FAERS Safety Report 9732169 (Version 1)
Quarter: 2013Q4

REPORT INFORMATION
  Report Type: Spontaneous
  Country: BR (occurrence: BR)
  Receive Date: 20131205
  Receipt Date: 20131205
  Transmission Date: 20140711
  Serious: Yes (Other)
  Sender: FDA-Public Use
  Company Number: BR-SA-2013SA123512

PATIENT
  Age: 56 Year
  Sex: Male
  Weight: 75 kg

DRUGS (7)
  1. LANTUS [Suspect]
     Indication: TYPE 1 DIABETES MELLITUS
     Dosage: 3 ML CARTRIDGE
     Route: 058
     Dates: start: 2012
  2. CREON [Concomitant]
     Dosage: STRENGTH: 25000
     Route: 048
  3. CITALOPRAM HYDROBROMIDE [Concomitant]
     Indication: SEDATIVE THERAPY
     Dosage: STRENGTH: 20 MG
     Route: 048
  4. IMOSEC [Concomitant]
     Indication: GASTROINTESTINAL DISORDER
     Dosage: STRENGTH: 2 MG
     Route: 048
  5. ATENOLOL [Concomitant]
     Indication: BLOOD PRESSURE
     Dosage: STRENGTH: 25 MG
     Route: 048
  6. LOSARTAN [Concomitant]
     Indication: BLOOD PRESSURE
     Dosage: STRENGTH: 50  MG
     Route: 048
  7. NIFEDIPINE [Concomitant]
     Indication: BLOOD PRESSURE
     Dosage: STRENGTH: 15 MG
     Route: 048

REACTIONS (5)
  - Pancreatitis [Not Recovered/Not Resolved]
  - Diarrhoea [Not Recovered/Not Resolved]
  - Dizziness [Not Recovered/Not Resolved]
  - Bedridden [Not Recovered/Not Resolved]
  - Renal disorder [Not Recovered/Not Resolved]
